FAERS Safety Report 4381273-0 (Version None)
Quarter: 2004Q2

REPORT INFORMATION
  Report Type: 
  Country: None (occurrence: None)
  Receive Date: 20040614
  Receipt Date: 20040608
  Transmission Date: 20050107
  Serious: Yes (Death, Hospitalization)
  Sender: FDA-Public Use
  Company Number: TIF2004A00021

PATIENT
  Age: 83 Year
  Sex: Male

DRUGS (7)
  1. LEUPROLIDE ACETATE [Suspect]
     Indication: PROSTATE CANCER
     Dosage: (3.75 MG, 1 IN 28 D)
     Dates: start: 20020903, end: 20040218
  2. FLUTAMIDE [Suspect]
     Indication: PROSTATE CANCER
     Dosage: (2 IN 1 D), ORAL
     Route: 048
     Dates: start: 20020903, end: 20040218
  3. DIGOXIN (DIGOXIN) (TABLETS) [Concomitant]
  4. OXYCONTIN (OXYCODONE HYDROCHLORIDE) (TABLETS) [Concomitant]
  5. TRITACE (RAMIPRIL) (TABLETS) [Concomitant]
  6. CORVATON (MOLSIDOMINE) (TABLETS) [Concomitant]
  7. CIPHIN (CIPROFLOXACIN HYDROCHLORIDE) (TABLETS) [Concomitant]

REACTIONS (21)
  - ANAEMIA MACROCYTIC [None]
  - ARTERIOSCLEROSIS [None]
  - ATROPHY [None]
  - BRONCHOPNEUMONIA [None]
  - CHOREA [None]
  - COUGH [None]
  - DECUBITUS ULCER [None]
  - DEHYDRATION [None]
  - DYSPNOEA [None]
  - GLAUCOMA [None]
  - HYPERTENSION [None]
  - LIVER DISORDER [None]
  - METASTASES TO BONE [None]
  - MYOCARDIAL ISCHAEMIA [None]
  - NEOPLASM PROGRESSION [None]
  - NERVOUS SYSTEM DISORDER [None]
  - PROSTATIC SPECIFIC ANTIGEN INCREASED [None]
  - PYREXIA [None]
  - QUADRIPARESIS [None]
  - SPINAL COMPRESSION FRACTURE [None]
  - UROSEPSIS [None]
